FAERS Safety Report 6822751-1 (Version None)
Quarter: 2010Q3

REPORT INFORMATION
  Report Type: 
  Country: None (occurrence: None)
  Receive Date: 20100708
  Receipt Date: 20100702
  Transmission Date: 20110219
  Serious: Yes (Hospitalization, Other)
  Sender: FDA-Public Use
  Company Number: JP-ROCHE-601770

PATIENT
  Sex: Female
  Weight: 52.6 kg

DRUGS (7)
  1. NAPROXEN [Suspect]
     Indication: PRODUCT USED FOR UNKNOWN INDICATION
     Dosage: FORMULATION: PERORAL AGENT.
     Route: 048
  2. ERLOTINIB [Suspect]
     Indication: LUNG ADENOCARCINOMA
     Route: 048
     Dates: start: 20081001, end: 20081107
  3. ERLOTINIB [Suspect]
     Route: 048
     Dates: start: 20081108, end: 20081110
  4. MYSLEE [Concomitant]
     Route: 048
  5. ASTOMIN [Concomitant]
     Dosage: FORMULATION: PERORAL AGENT.
     Route: 048
  6. ALTAT [Concomitant]
     Route: 048
  7. FERROMIA [Concomitant]
     Dosage: FORMULATION: PERORAL AGENT.
     Route: 048

REACTIONS (4)
  - GASTRIC ULCER [None]
  - HAEMOGLOBIN DECREASED [None]
  - RASH [None]
  - SKIN ULCER [None]
